FAERS Safety Report 5417307-1 (Version None)
Quarter: 2007Q3

REPORT INFORMATION
  Report Type: 
  Country: None (occurrence: None)
  Receive Date: 20070816
  Receipt Date: 20070806
  Transmission Date: 20080115
  Serious: Yes (Other)
  Sender: FDA-Public Use
  Company Number: US-ABBOTT-06P-163-0346704-00

PATIENT
  Sex: Female
  Weight: 55.388 kg

DRUGS (6)
  1. HUMIRA [Suspect]
     Indication: CROHN'S DISEASE
     Route: 058
     Dates: start: 20060612
  2. CYMBALTA [Concomitant]
     Indication: DEPRESSION
     Route: 048
     Dates: start: 20060101
  3. SINGULAIR [Concomitant]
     Indication: ASTHMA
     Route: 048
     Dates: start: 20050101
  4. CETIRIZINE HCL [Concomitant]
     Indication: HYPERSENSITIVITY
     Route: 048
     Dates: start: 20050101
  5. SERETIDE MITE [Concomitant]
     Indication: ASTHMA
     Route: 048
     Dates: start: 20050101
  6. SALBUTAMOL [Concomitant]
     Indication: ASTHMA
     Route: 048
     Dates: start: 20050101

REACTIONS (2)
  - OCULAR SURFACE DISEASE [None]
  - SKIN DISORDER [None]
